FAERS Safety Report 8770271 (Version 1)
Quarter: 2012Q4

REPORT INFORMATION
  Report Type: 
  Country: US (occurrence: US)
  Receive Date: 20120906
  Receipt Date: 20120906
  Transmission Date: 20130627
  Serious: No
  Sender: FDA-Public Use
  Company Number: US-GLAXOSMITHKLINE-A0984801A

PATIENT
  Age: 57 Year
  Sex: Female

DRUGS (7)
  1. LAMICTAL [Suspect]
     Indication: MOOD SWINGS
     Dosage: 200MG Per day
     Route: 048
     Dates: start: 2009
  2. EFFEXOR [Concomitant]
  3. KLONOPIN [Concomitant]
  4. BUSPAR [Concomitant]
  5. TRAZODONE [Concomitant]
  6. METFORMIN [Concomitant]
  7. DOXYCYCLINE HYCLATE [Concomitant]

REACTIONS (2)
  - Anxiety [Not Recovered/Not Resolved]
  - Drug ineffective [Unknown]
